FAERS Safety Report 19943095 (Version 1)
Quarter: 2021Q4

REPORT INFORMATION
  Report Type: Spontaneous
  Country: ES (occurrence: ES)
  Receive Date: 20211012
  Receipt Date: 20211012
  Transmission Date: 20220303
  Serious: Yes (Death)
  Sender: FDA-Public Use
  Company Number: ES-AUROBINDO-AUR-APL-2019-041010

PATIENT
  Age: 92 Year
  Sex: Female

DRUGS (4)
  1. FUROSEMIDE [Interacting]
     Active Substance: FUROSEMIDE
     Indication: Cardiac failure
     Dosage: 40 MG. 1 COMPRIMIDO EN DESAYUNO Y 1 COMPRIMIDO EN COMIDA
     Route: 048
     Dates: start: 20150616, end: 20190620
  2. COZAAR [Interacting]
     Active Substance: LOSARTAN POTASSIUM
     Indication: Cardiac failure
     Dosage: 12.5 MILLIGRAM, ONCE A DAY
     Route: 048
     Dates: start: 20170711, end: 20190610
  3. ALDACTONE [Interacting]
     Active Substance: SPIRONOLACTONE
     Indication: Cardiac failure
     Dosage: 25 MILLIGRAM, ONCE A DAY
     Route: 048
     Dates: start: 20180724, end: 20190610
  4. CHLORTHALIDONE [Interacting]
     Active Substance: CHLORTHALIDONE
     Indication: Hypertension
     Dosage: UN COMP EN LA MERIENDA SOLAMENTE LOS LUNES Y JUEVES
     Route: 048
     Dates: start: 20190506, end: 20190610

REACTIONS (2)
  - Dehydration [Fatal]
  - Hyponatraemia [Fatal]

NARRATIVE: CASE EVENT DATE: 20190610
